FAERS Safety Report 5322352-0 (Version None)
Quarter: 2007Q2

REPORT INFORMATION
  Report Type: 
  Country: None (occurrence: None)
  Receive Date: 20070511
  Receipt Date: 20070504
  Transmission Date: 20071010
  Serious: Yes (Other)
  Sender: FDA-Public Use
  Company Number: US-ELI_LILLY_AND_COMPANY-US200705001416

PATIENT
  Age: 68 Year
  Sex: Female

DRUGS (1)
  1. BYETTA [Suspect]
     Indication: DIABETES MELLITUS NON-INSULIN-DEPENDENT
     Dosage: UNK, UNKNOWN
     Route: 058
     Dates: start: 20051101

REACTIONS (2)
  - BLINDNESS UNILATERAL [None]
  - WEIGHT DECREASED [None]
